FAERS Safety Report 5646853-0 (Version None)
Quarter: 2008Q1

REPORT INFORMATION
  Report Type: 
  Country: None (occurrence: None)
  Receive Date: 20080303
  Receipt Date: 20080229
  Transmission Date: 20080703
  Serious: Yes (Other)
  Sender: FDA-Public Use
  Company Number: A0685781A

PATIENT
  Age: 24 Year
  Sex: Female

DRUGS (1)
  1. ALLI [Suspect]
     Indication: WEIGHT CONTROL

REACTIONS (2)
  - ANKLE FRACTURE [None]
  - DRUG INEFFECTIVE [None]
